FAERS Safety Report 5589933-0 (Version None)
Quarter: 2008Q1

REPORT INFORMATION
  Report Type: 
  Country: None (occurrence: None)
  Receive Date: 20080114
  Receipt Date: 20080104
  Transmission Date: 20080703
  Serious: Yes (Death)
  Sender: FDA-Public Use
  Company Number: US-JNJFOC-20080101066

PATIENT
  Age: 51 Year
  Sex: Female

DRUGS (4)
  1. HALOPERIDOL [Suspect]
     Indication: DRUG USE FOR UNKNOWN INDICATION
  2. HYDROCODONE [Suspect]
     Indication: DRUG USE FOR UNKNOWN INDICATION
  3. QUETIAPINE [Suspect]
     Indication: DRUG USE FOR UNKNOWN INDICATION
  4. METHAMPHETAMINE HYDROCHLORIDE [Suspect]
     Indication: DRUG USE FOR UNKNOWN INDICATION

REACTIONS (1)
  - DRUG TOXICITY [None]
